FAERS Safety Report 15408984 (Version 3)
Quarter: 2018Q4

REPORT INFORMATION
  Report Type: Spontaneous
  Country: US (occurrence: US)
  Receive Date: 20180920
  Receipt Date: 20181022
  Transmission Date: 20190204
  Serious: Yes (Hospitalization, Other)
  Sender: FDA-Public Use
  Company Number: US-OTSUKA-2018_020139

PATIENT
  Age: 50 Year
  Sex: Female

DRUGS (25)
  1. ALMACONE [Concomitant]
     Active Substance: ALUMINUM HYDROXIDE\DIMETHICONE\MAGNESIUM HYDROXIDE
     Indication: PRODUCT USED FOR UNKNOWN INDICATION
     Dosage: 20 ML, AS NEEDED
     Route: 065
     Dates: start: 20140506, end: 20141202
  2. RISPERDAL [Concomitant]
     Active Substance: RISPERIDONE
     Indication: BIPOLAR DISORDER
     Dosage: 1 MG, BID
     Route: 048
     Dates: start: 20140613, end: 20140613
  3. PAXIL [Concomitant]
     Active Substance: PAROXETINE HYDROCHLORIDE
     Indication: PRODUCT USED FOR UNKNOWN INDICATION
     Dosage: 2.5 MG, QHS
     Route: 048
     Dates: start: 20130531, end: 20140310
  4. ABILIFY [Suspect]
     Active Substance: ARIPIPRAZOLE
     Dosage: 5 MG, QD
     Route: 048
  5. DEPAKOTE [Concomitant]
     Active Substance: DIVALPROEX SODIUM
     Dosage: UNK
     Route: 065
     Dates: start: 20140605, end: 20141202
  6. HALDOL [Concomitant]
     Active Substance: HALOPERIDOL
     Indication: AGGRESSION
  7. PROPRANOLOL [Concomitant]
     Active Substance: PROPRANOLOL HYDROCHLORIDE
     Indication: PRODUCT USED FOR UNKNOWN INDICATION
     Dosage: 20 MG, QD
     Route: 048
     Dates: start: 20130531, end: 20140310
  8. ABILIFY [Suspect]
     Active Substance: ARIPIPRAZOLE
     Indication: BIPOLAR DISORDER
     Dosage: 5MG -10MG -15MG
     Route: 065
     Dates: start: 201106, end: 201504
  9. ABILIFY [Suspect]
     Active Substance: ARIPIPRAZOLE
     Dosage: 5 MG, QD
     Route: 048
  10. DEPAKOTE [Concomitant]
     Active Substance: DIVALPROEX SODIUM
     Indication: BIPOLAR DISORDER
     Dosage: 1000 MG, QHS
     Route: 048
     Dates: start: 20140604
  11. DEPAKOTE [Concomitant]
     Active Substance: DIVALPROEX SODIUM
     Dosage: 500 MG, QD
     Route: 048
     Dates: start: 20140612, end: 20140613
  12. ATIVAN [Concomitant]
     Active Substance: LORAZEPAM
     Indication: AGGRESSION
  13. CHAPSTICK CLASSIC ORIGINAL [Concomitant]
     Active Substance: PETROLATUM
     Indication: PRODUCT USED FOR UNKNOWN INDICATION
     Dosage: 1.5%-44% AS NEEDED
     Route: 061
     Dates: start: 20140605, end: 20140612
  14. ATIVAN [Concomitant]
     Active Substance: LORAZEPAM
     Indication: AGITATION
     Dosage: 2 MG, EVERY 6 HOURS
     Route: 048
     Dates: start: 20140605
  15. BENADRYL [Concomitant]
     Active Substance: DIPHENHYDRAMINE HYDROCHLORIDE
     Indication: MUSCULOSKELETAL STIFFNESS
  16. NICOTINE. [Concomitant]
     Active Substance: NICOTINE
     Indication: PRODUCT USED FOR UNKNOWN INDICATION
     Dosage: 21 MG, QD
     Route: 061
  17. PROGESTERONE. [Concomitant]
     Active Substance: PROGESTERONE
     Indication: PRODUCT USED FOR UNKNOWN INDICATION
     Dosage: UNK
     Route: 065
     Dates: start: 20111107, end: 20140508
  18. BENADRYL [Concomitant]
     Active Substance: DIPHENHYDRAMINE HYDROCHLORIDE
     Indication: AGGRESSION
  19. BENADRYL [Concomitant]
     Active Substance: DIPHENHYDRAMINE HYDROCHLORIDE
     Indication: EXTRAPYRAMIDAL DISORDER
  20. ACETAMINOPHEN. [Concomitant]
     Active Substance: ACETAMINOPHEN
     Indication: HEADACHE
     Dosage: 325 MG, UNK
     Route: 048
     Dates: start: 20140605, end: 20140613
  21. HALDOL [Concomitant]
     Active Substance: HALOPERIDOL
     Indication: AGITATION
     Dosage: 5 MG, QHS
     Route: 048
     Dates: start: 20140604
  22. BENADRYL [Concomitant]
     Active Substance: DIPHENHYDRAMINE HYDROCHLORIDE
     Indication: AGITATION
     Dosage: 50 MG, EVERY 6 HOURS AS NEEDED
     Route: 048
     Dates: start: 20140605, end: 20141202
  23. TORADOL [Concomitant]
     Active Substance: KETOROLAC TROMETHAMINE
     Indication: PAIN
     Dosage: 60 MG, QD
     Route: 030
     Dates: start: 20140605
  24. COGENTIN [Concomitant]
     Active Substance: BENZTROPINE MESYLATE
     Indication: EXTRAPYRAMIDAL DISORDER
     Dosage: 1 DF, BID (AS NEEDED)
     Route: 048
  25. METHADONE [Concomitant]
     Active Substance: METHADONE HYDROCHLORIDE
     Indication: PRODUCT USED FOR UNKNOWN INDICATION
     Dosage: 30 MG, QD
     Route: 048
     Dates: start: 20140319, end: 20140805

REACTIONS (27)
  - Miosis [Unknown]
  - Neuropsychiatric symptoms [Unknown]
  - Compulsive shopping [Unknown]
  - Fatigue [Unknown]
  - Blood triglycerides increased [Unknown]
  - Increased appetite [Unknown]
  - Obsessive-compulsive disorder [Unknown]
  - Economic problem [Unknown]
  - Mental disorder [Unknown]
  - Injury [Unknown]
  - Somnolence [Unknown]
  - Refusal of treatment by patient [Unknown]
  - Aspartate aminotransferase decreased [Unknown]
  - Granulocyte count increased [Unknown]
  - Haemoglobin increased [Unknown]
  - Condition aggravated [Recovering/Resolving]
  - Suicidal ideation [Recovered/Resolved]
  - Hormone level abnormal [Unknown]
  - Drug level decreased [Unknown]
  - Treatment noncompliance [Unknown]
  - Blood cholesterol increased [Unknown]
  - Gambling disorder [Recovering/Resolving]
  - Weight increased [Unknown]
  - Blood creatinine decreased [Unknown]
  - Emotional distress [Unknown]
  - Blood chloride increased [Unknown]
  - Blood sodium increased [Unknown]

NARRATIVE: CASE EVENT DATE: 20140312
